FAERS Safety Report 5199314-X (Version None)
Quarter: 2006Q4

REPORT INFORMATION
  Report Type: 
  Country: None (occurrence: None)
  Receive Date: 20061016
  Receipt Date: 20060617
  Transmission Date: 20070319
  Serious: No
  Sender: FDA-Public Use
  Company Number: 2006SP002483

PATIENT
  Age: 77 Year
  Sex: Female
  Weight: 61.6892 kg

DRUGS (4)
  1. LUNESTA [Suspect]
     Indication: INSOMNIA
     Dosage: 1 MG; HS; ORAL
     Route: 048
     Dates: start: 20060602, end: 20060606
  2. AVAPRO [Concomitant]
  3. PREVACID [Concomitant]
  4. VYTORIN [Concomitant]

REACTIONS (1)
  - HEADACHE [None]
